FAERS Safety Report 25030911 (Version 2)
Quarter: 2025Q1

REPORT INFORMATION
  Report Type: Spontaneous
  Country: KR (occurrence: KR)
  Receive Date: 20250303
  Receipt Date: 20250325
  Transmission Date: 20250408
  Serious: Yes (Hospitalization)
  Sender: MYLAN
  Company Number: KR-MYLANLABS-2025M1007234

PATIENT
  Age: 29 Year
  Sex: Female

DRUGS (8)
  1. CLOZARIL [Suspect]
     Active Substance: CLOZAPINE
     Indication: Schizophrenia
  2. LITHIUM [Concomitant]
     Active Substance: LITHIUM
  3. BENZTROPINE [Concomitant]
     Active Substance: BENZTROPINE
  4. MOSAPRIDE CITRATE [Concomitant]
     Active Substance: MOSAPRIDE CITRATE
  5. HALOPERIDOL [Concomitant]
     Active Substance: HALOPERIDOL
  6. ROPINIROLE [Concomitant]
     Active Substance: ROPINIROLE
  7. MAGNESIUM HYDROXIDE [Concomitant]
     Active Substance: MAGNESIUM HYDROXIDE
  8. ALAXYL [Concomitant]
     Active Substance: PLANTAGO SEED\SENNA LEAF

REACTIONS (3)
  - Schizophrenia [Unknown]
  - White blood cell count decreased [Recovered/Resolved]
  - Neutrophil count decreased [Recovered/Resolved]

NARRATIVE: CASE EVENT DATE: 20240920
